FAERS Safety Report 5491264-4 (Version None)
Quarter: 2007Q4

REPORT INFORMATION
  Report Type: 
  Country: None (occurrence: None)
  Receive Date: 20071019
  Receipt Date: 20071012
  Transmission Date: 20080405
  Serious: Yes (Death, Hospitalization)
  Sender: FDA-Public Use
  Company Number: DE-GENENTECH-248009

PATIENT
  Sex: Male

DRUGS (5)
  1. RITUXIMAB [Suspect]
     Indication: B-CELL LYMPHOMA
     Dosage: 750 MG, UNK
     Dates: start: 20070509
  2. ETOPOSIDE [Suspect]
     Indication: B-CELL LYMPHOMA
     Dosage: 200 MG, UNK
     Dates: start: 20070510
  3. CARBOPLATIN [Suspect]
     Indication: B-CELL LYMPHOMA
     Dosage: 611 MG, UNK
     Dates: start: 20070511
  4. IFOSFAMIDE [Suspect]
     Indication: B-CELL LYMPHOMA
     Dosage: 10000 MG, UNK
     Dates: start: 20070511
  5. NEUPOGEN [Concomitant]
     Dosage: 480 A?G, UNK
     Dates: start: 20070515

REACTIONS (3)
  - MULTI-ORGAN FAILURE [None]
  - PANCYTOPENIA [None]
  - SEPSIS [None]
